FAERS Safety Report 16684516 (Version 1)
Quarter: 2019Q3

REPORT INFORMATION
  Report Type: Spontaneous
  Country: GB (occurrence: GB)
  Receive Date: 20190808
  Receipt Date: 20190808
  Transmission Date: 20191004
  Serious: Yes (Disabling)
  Sender: FDA-Public Use
  Company Number: GB-TEVA-2019-GB-1090016

PATIENT
  Age: 91 Year
  Sex: Female
  Weight: 55 kg

DRUGS (11)
  1. LACTULOSE. [Concomitant]
     Active Substance: LACTULOSE
     Dates: start: 20190207
  2. LUVENTA XL [Concomitant]
     Dates: start: 20190207, end: 20190612
  3. ZEROBASE [Concomitant]
     Active Substance: MINERAL OIL\PARAFFIN
     Indication: DRY SKIN
     Dosage: APPLY AS OFTEN AS NEEDED- USE PLENTY.
     Route: 061
     Dates: start: 20190508
  4. MEMANTINE. [Suspect]
     Active Substance: MEMANTINE
     Dosage: INITIALLY 5 DOSAGE FORMS
     Dates: start: 20190613
  5. LORAZEPAM. [Concomitant]
     Active Substance: LORAZEPAM
     Dosage: TAKE HALF UP TO TWICE DAILY.
     Dates: start: 20190613, end: 20190620
  6. GALANTAMINE. [Concomitant]
     Active Substance: GALANTAMINE
     Dates: start: 20190411, end: 20190613
  7. CASSIA [Concomitant]
     Dosage: AT NIGHT.
     Dates: start: 20190207
  8. SERTRALINE [Concomitant]
     Active Substance: SERTRALINE HYDROCHLORIDE
     Dates: start: 20190207
  9. ADCAL [Concomitant]
     Dates: start: 20190207
  10. BENDROFLUMETHIAZIDE [Concomitant]
     Active Substance: BENDROFLUMETHIAZIDE
     Dosage: EACH MORNING
     Dates: start: 20190207, end: 20190510
  11. PARACETAMOL [Concomitant]
     Active Substance: ACETAMINOPHEN
     Dosage: TAKE ONE OR TWO FOUR TIMES A DAY.
     Dates: start: 20190529

REACTIONS (4)
  - Somnolence [Unknown]
  - Balance disorder [Unknown]
  - Yawning [Unknown]
  - Dyskinesia [Unknown]
